FAERS Safety Report 10495827 (Version 1)
Quarter: 2014Q3

REPORT INFORMATION
  Report Type: Spontaneous
  Country: US (occurrence: None)
  Receive Date: 20140815
  Receipt Date: 20140815
  Transmission Date: 20150326
  Serious: Yes (Other)
  Sender: FDA-Public Use
  Company Number: ADR-2013-01923

PATIENT
  Age: 34 Year
  Sex: Male

DRUGS (3)
  1. CLONIDINE. [Suspect]
     Active Substance: CLONIDINE
  2. BACLOFEN INTRATHECAL [Suspect]
     Active Substance: BACLOFEN
     Indication: PAIN
  3. FENTANYL. [Suspect]
     Active Substance: FENTANYL

REACTIONS (5)
  - Oedema peripheral [None]
  - Joint swelling [None]
  - Discomfort [None]
  - Malaise [None]
  - Dizziness [None]
